FAERS Safety Report 12657699 (Version 1)
Quarter: 2016Q3

REPORT INFORMATION
  Report Type: Report from Study
  Country: GB (occurrence: GB)
  Receive Date: 20160816
  Receipt Date: 20160816
  Transmission Date: 20161109
  Serious: Yes (Other)
  Sender: FDA-Public Use
  Company Number: GB-ASTRAZENECA-2016SE72313

PATIENT
  Age: 67 Year
  Sex: Male

DRUGS (8)
  1. BOSUTINIB [Suspect]
     Active Substance: BOSUTINIB
     Route: 065
     Dates: start: 20120206, end: 20131015
  2. ROSUVASTATIN. [Suspect]
     Active Substance: ROSUVASTATIN
     Route: 048
  3. BOSUTINIB [Suspect]
     Active Substance: BOSUTINIB
     Route: 065
     Dates: start: 20131029, end: 20140827
  4. BOSUTINIB [Suspect]
     Active Substance: BOSUTINIB
     Route: 065
     Dates: start: 20140910
  5. ISOSORBIDE MONONITRATE. [Concomitant]
     Active Substance: ISOSORBIDE MONONITRATE
  6. ALLOPURINOL. [Concomitant]
     Active Substance: ALLOPURINOL
  7. LANSOPRAZOLE. [Concomitant]
     Active Substance: LANSOPRAZOLE
  8. WARFARIN [Concomitant]
     Active Substance: WARFARIN

REACTIONS (2)
  - Angina pectoris [Recovered/Resolved]
  - Back pain [Unknown]

NARRATIVE: CASE EVENT DATE: 20141219
